FAERS Safety Report 4610316-1 (Version None)
Quarter: 2005Q1

REPORT INFORMATION
  Report Type: 
  Country: None (occurrence: None)
  Receive Date: 20050314
  Receipt Date: 20050301
  Transmission Date: 20050727
  Serious: Yes (Hospitalization, Other)
  Sender: FDA-Public Use
  Company Number: 16952

PATIENT
  Age: 52 Year
  Sex: Female

DRUGS (1)
  1. ADRIAMYCIN (DOXORUBICIN) FOR INJ. USP 10MG - BEN VENUE LABS, INC. [Suspect]
     Indication: BREAST CANCER
     Dosage: 1 DOSE IV PUSH
     Route: 042
     Dates: start: 20050214

REACTIONS (5)
  - ASTHENIA [None]
  - CHEST PAIN [None]
  - DYSPNOEA [None]
  - INJECTION SITE EXTRAVASATION [None]
  - PLEURAL EFFUSION [None]
